FAERS Safety Report 7831285-7 (Version None)
Quarter: 2011Q4

REPORT INFORMATION
  Report Type: 
  Country: None (occurrence: None)
  Receive Date: 20111021
  Receipt Date: 20111011
  Transmission Date: 20120403
  Serious: Yes (Other)
  Sender: FDA-Public Use
  Company Number: AR-ROCHE-1005193

PATIENT
  Sex: Female

DRUGS (2)
  1. INSULIN [Concomitant]
  2. LUCENTIS [Suspect]
     Indication: CORNEAL DISORDER
     Dosage: SINCE THREE MONTHS
     Route: 050

REACTIONS (2)
  - CONVULSION [None]
  - BLOOD GLUCOSE DECREASED [None]
